FAERS Safety Report 23471313 (Version 1)
Quarter: 2024Q1

REPORT INFORMATION
  Report Type: Spontaneous
  Country: US (occurrence: None)
  Receive Date: 20240202
  Receipt Date: 20240202
  Transmission Date: 20240409
  Serious: Yes (Hospitalization)
  Sender: FDA-Public Use
  Company Number: None

PATIENT
  Sex: Male

DRUGS (3)
  1. AVSOLA [Suspect]
     Active Substance: INFLIXIMAB-AXXQ
     Indication: Sarcoidosis
     Dosage: 500MG EVERY 8 WEEKS IV?
     Route: 042
     Dates: start: 202312
  2. AVSOLA [Suspect]
     Active Substance: INFLIXIMAB-AXXQ
     Indication: Psoriasis
  3. EPINEPHRINE [Concomitant]

REACTIONS (3)
  - Insurance issue [None]
  - Therapeutic product effect decreased [None]
  - Pneumonitis [None]
